FAERS Safety Report 12276836 (Version 1)
Quarter: 2016Q2

REPORT INFORMATION
  Report Type: Spontaneous
  Country: US (occurrence: None)
  Receive Date: 20160415
  Receipt Date: 20160415
  Transmission Date: 20160815
  Serious: No
  Sender: FDA-Public Use
  Company Number: None

PATIENT
  Age: 34 Year

DRUGS (1)
  1. SUBOXONE [Suspect]
     Active Substance: BUPRENORPHINE HYDROCHLORIDE\NALOXONE HYDROCHLORIDE

REACTIONS (6)
  - Irritability [None]
  - Headache [None]
  - Respiratory disorder [None]
  - Fatigue [None]
  - Amenorrhoea [None]
  - Myalgia [None]

NARRATIVE: CASE EVENT DATE: 20160409
